FAERS Safety Report 7021693-9 (Version None)
Quarter: 2010Q3

REPORT INFORMATION
  Report Type: 
  Country: None (occurrence: None)
  Receive Date: 20100928
  Receipt Date: 20100917
  Transmission Date: 20110219
  Serious: Yes (Hospitalization)
  Sender: FDA-Public Use
  Company Number: DSM-2010-01303

PATIENT
  Age: 85 Year
  Sex: Male

DRUGS (2)
  1. SEVIKAR (OLMESARTAN MEDOXOMIL, AMLODIPINE BESILATE) (TABLET) (OLMESART [Suspect]
     Indication: HYPERTENSION
     Dosage: ORAL
     Route: 048
     Dates: start: 20100716, end: 20100726
  2. LERCANIDIPINE [Suspect]
     Indication: HYPERTENSION
     Dosage: ORAL
     Route: 048
     Dates: start: 20100726, end: 20100801

REACTIONS (3)
  - HAEMOGLOBIN DECREASED [None]
  - RENAL FAILURE [None]
  - TOXIC SKIN ERUPTION [None]
